FAERS Safety Report 18762551 (Version 1)
Quarter: 2021Q1

REPORT INFORMATION
  Report Type: Spontaneous
  Country: US (occurrence: US)
  Receive Date: 20210120
  Receipt Date: 20210120
  Transmission Date: 20210419
  Serious: No
  Sender: FDA-Public Use
  Company Number: US-ALKEM LABORATORIES LIMITED-US-ALKEM-2020-09091

PATIENT
  Age: 34 Year
  Sex: Female

DRUGS (4)
  1. TRIAMCINOLONE ACETONIDE. [Suspect]
     Active Substance: TRIAMCINOLONE ACETONIDE
     Indication: NIPPLE DISORDER
     Dosage: UNK
     Route: 061
  2. FLUCONAZOLE. [Suspect]
     Active Substance: FLUCONAZOLE
     Indication: ANTIFUNGAL TREATMENT
     Dosage: UNK
     Route: 048
  3. LECITHIN [Suspect]
     Active Substance: LECITHIN
     Indication: NIPPLE DISORDER
     Dosage: UNK
     Route: 048
  4. GENTIAN VIOLET [Suspect]
     Active Substance: GENTIAN VIOLET
     Indication: ANTIFUNGAL TREATMENT
     Dosage: UNK
     Route: 065

REACTIONS (2)
  - Drug ineffective [Unknown]
  - Exposure via breast milk [Unknown]
